FAERS Safety Report 10722172 (Version 1)
Quarter: 2015Q1

REPORT INFORMATION
  Report Type: Spontaneous
  Country: US (occurrence: US)
  Receive Date: 20150119
  Receipt Date: 20150119
  Transmission Date: 20150721
  Serious: Yes (Death)
  Sender: FDA-Public Use
  Company Number: PHHY2015US002840

PATIENT
  Age: 67 Year
  Sex: Male

DRUGS (5)
  1. RITUXIMAB [Suspect]
     Active Substance: RITUXIMAB
     Indication: B-CELL LYMPHOMA
     Route: 065
  2. PREDNISONE. [Suspect]
     Active Substance: PREDNISONE
     Indication: B-CELL LYMPHOMA
     Route: 065
  3. DOXORUBICIN [Suspect]
     Active Substance: DOXORUBICIN
     Indication: B-CELL LYMPHOMA
     Route: 065
  4. CYCLOPHOSPHAMIDE. [Suspect]
     Active Substance: CYCLOPHOSPHAMIDE
     Indication: B-CELL LYMPHOMA
     Route: 065
  5. VINCRISTINE [Suspect]
     Active Substance: VINCRISTINE
     Indication: B-CELL LYMPHOMA
     Route: 065

REACTIONS (16)
  - Decreased appetite [Fatal]
  - Pyrexia [Fatal]
  - Dyspnoea [Fatal]
  - Leukocytosis [Fatal]
  - Abdominal pain upper [Fatal]
  - Bone marrow failure [Fatal]
  - Cough [Fatal]
  - Abdominal lymphadenopathy [Fatal]
  - Acute myeloid leukaemia [Fatal]
  - Pancytopenia [Fatal]
  - Malaise [Fatal]
  - Cardio-respiratory arrest [Fatal]
  - Nausea [Fatal]
  - Chloroma [Fatal]
  - Night sweats [Fatal]
  - Diarrhoea [Fatal]
